FAERS Safety Report 8273402-3 (Version None)
Quarter: 2012Q2

REPORT INFORMATION
  Report Type: 
  Country: None (occurrence: None)
  Receive Date: 20120409
  Receipt Date: 20120409
  Transmission Date: 20120825
  Serious: Yes (Hospitalization)
  Sender: FDA-Public Use
  Company Number: None

PATIENT
  Sex: Female
  Weight: 84.5 kg

DRUGS (3)
  1. VELCADE [Suspect]
     Dosage: 4.8 MG
  2. RITUXIMAB (MOAB C2B8 ANTI CD20, CHIMERIC) [Suspect]
     Dosage: 709 MG
  3. BENDAMUSTINE HYDROCHLORIDE [Suspect]
     Dosage: 340 MG

REACTIONS (6)
  - DEHYDRATION [None]
  - CYSTITIS [None]
  - LIPASE INCREASED [None]
  - CLOSTRIDIAL INFECTION [None]
  - HYPOKALAEMIA [None]
  - SMALL INTESTINAL OBSTRUCTION [None]
